FAERS Safety Report 10578283 (Version 1)
Quarter: 2014Q4

REPORT INFORMATION
  Report Type: Spontaneous
  Country: PH (occurrence: PH)
  Receive Date: 20141112
  Receipt Date: 20141112
  Transmission Date: 20150529
  Serious: Yes (Hospitalization)
  Sender: FDA-Public Use
  Company Number: PH-009507513-1411PHL004382

PATIENT
  Age: 47 Year
  Sex: Female

DRUGS (1)
  1. JANUMET [Suspect]
     Active Substance: METFORMIN HYDROCHLORIDE\SITAGLIPTIN PHOSPHATE
     Indication: DIABETES MELLITUS
     Dosage: UNK, BID, STRENGTH 500 MG/50 MG
     Route: 048
     Dates: end: 201410

REACTIONS (5)
  - Abdominal pain [Recovering/Resolving]
  - Pneumonia [Recovering/Resolving]
  - Blood glucose abnormal [Recovering/Resolving]
  - Blood pressure increased [Recovering/Resolving]
  - Blood cholesterol increased [Recovering/Resolving]

NARRATIVE: CASE EVENT DATE: 201410
